FAERS Safety Report 5162758-6 (Version None)
Quarter: 2006Q4

REPORT INFORMATION
  Report Type: 
  Country: None (occurrence: None)
  Receive Date: 20061121
  Receipt Date: 20061115
  Transmission Date: 20070319
  Serious: Yes (Hospitalization)
  Sender: FDA-Public Use
  Company Number: SU-2006-005527

PATIENT
  Age: 61 Year
  Sex: Male
  Weight: 106.5953 kg

DRUGS (10)
  1. BENICAR HCT [Suspect]
     Indication: HYPERTENSION
     Dosage: 40.25 MG QD PO
     Route: 048
     Dates: start: 20040615, end: 20061010
  2. TETRACYCLINE [Concomitant]
  3. DILTIAZEM [Concomitant]
  4. WARFARIN SODIUM [Concomitant]
  5. LACTINEX [Concomitant]
  6. FLAGYL [Concomitant]
  7. CIPRO [Concomitant]
  8. LIPITOR [Concomitant]
  9. ATENOLOL [Concomitant]
  10. ALINIA [Concomitant]

REACTIONS (5)
  - DIARRHOEA [None]
  - RENAL FAILURE [None]
  - TROPICAL SPRUE [None]
  - VOMITING [None]
  - WEIGHT DECREASED [None]
